FAERS Safety Report 25614228 (Version 1)
Quarter: 2025Q3

REPORT INFORMATION
  Report Type: Report from Study
  Country: US (occurrence: US)
  Receive Date: 20250728
  Receipt Date: 20250728
  Transmission Date: 20251020
  Serious: Yes (Other)
  Sender: ABBVIE
  Company Number: US-ABBVIE-6385590

PATIENT
  Age: 66 Year
  Sex: Male

DRUGS (1)
  1. HUMIRA [Suspect]
     Active Substance: ADALIMUMAB
     Indication: Psoriasis
     Route: 058
     Dates: start: 20250501

REACTIONS (11)
  - Loss of consciousness [Recovering/Resolving]
  - Photophobia [Not Recovered/Not Resolved]
  - Hepatic failure [Unknown]
  - Rash macular [Recovering/Resolving]
  - Eye pain [Not Recovered/Not Resolved]
  - Fall [Recovering/Resolving]
  - Haemoglobin decreased [Unknown]
  - Rash pruritic [Recovering/Resolving]
  - Head injury [Recovering/Resolving]
  - Ocular hyperaemia [Unknown]
  - Diabetes mellitus [Unknown]

NARRATIVE: CASE EVENT DATE: 20250101
